FAERS Safety Report 4540778-X (Version None)
Quarter: 2004Q4

REPORT INFORMATION
  Report Type: 
  Country: None (occurrence: None)
  Receive Date: 20041222
  Receipt Date: 20041206
  Transmission Date: 20050328
  Serious: Yes (Death)
  Sender: FDA-Public Use
  Company Number: JP_041205294

PATIENT
  Age: 71 Year
  Sex: Male
  Weight: 42 kg

DRUGS (10)
  1. GEMZAR [Suspect]
     Indication: NON-SMALL CELL LUNG CANCER
     Dosage: 1300 MG OTHER
     Route: 050
     Dates: start: 20041021, end: 20041101
  2. NAVELBINE [Concomitant]
  3. MS CONTIN [Concomitant]
  4. FENTANYL [Concomitant]
  5. GASTER (FAMOTIDINE) [Concomitant]
  6. PREDNISOLONE [Concomitant]
  7. ISONIAZID [Concomitant]
  8. BACTRAMIN [Concomitant]
  9. CLARITHROMYCIN [Concomitant]
  10. HARNAL (TAMSULOSIN HYDROCHLORIDE) [Concomitant]

REACTIONS (8)
  - CONDITION AGGRAVATED [None]
  - DRUG INEFFECTIVE [None]
  - LYMPHANGIOSIS CARCINOMATOSA [None]
  - LYMPHOCYTE COUNT DECREASED [None]
  - METASTASES TO LUNG [None]
  - PNEUMONITIS [None]
  - RESPIRATORY DISORDER [None]
  - THROMBOSIS [None]
